FAERS Safety Report 13539994 (Version 1)
Quarter: 2017Q2

REPORT INFORMATION
  Report Type: Spontaneous
  Country: IT (occurrence: IT)
  Receive Date: 20170512
  Receipt Date: 20170512
  Transmission Date: 20170830
  Serious: Yes (Death, Life-Threatening, Other)
  Sender: FDA-Public Use
  Company Number: IT-GLAXOSMITHKLINE-IT2017068896

PATIENT
  Age: 35 Year
  Sex: Female

DRUGS (8)
  1. TRAMADOL. [Suspect]
     Active Substance: TRAMADOL
  2. LAMOTRIGINE. [Suspect]
     Active Substance: LAMOTRIGINE
  3. O-DESMETHYLVENLAFAXINE [Suspect]
     Active Substance: DESVENLAFAXINE
  4. ZOPICLONE [Suspect]
     Active Substance: ZOPICLONE
  5. DIPHENHYDRAMINE. [Suspect]
     Active Substance: DIPHENHYDRAMINE
  6. ZOLPIDEM [Suspect]
     Active Substance: ZOLPIDEM\ZOLPIDEM TARTRATE
  7. MODAFINIL. [Suspect]
     Active Substance: MODAFINIL
  8. PREGABALIN. [Suspect]
     Active Substance: PREGABALIN

REACTIONS (2)
  - Hypersensitivity vasculitis [Fatal]
  - Toxicity to various agents [Fatal]
